FAERS Safety Report 5926443-2 (Version None)
Quarter: 2008Q4

REPORT INFORMATION
  Report Type: 
  Country: None (occurrence: None)
  Receive Date: 20081017
  Receipt Date: 20080923
  Transmission Date: 20090506
  Serious: Yes (Other)
  Sender: FDA-Public Use
  Company Number: ASO08000177

PATIENT
  Age: 12 Year
  Sex: Female

DRUGS (1)
  1. VAPORUB, REGULAR SCENT (CAMPHOR 143.07 MG, CEDAR LEAF OIL 20.4 MG, EUC [Suspect]
     Dosage: UNKNOWN TOPICAL
     Route: 061

REACTIONS (4)
  - ABASIA [None]
  - BURNS THIRD DEGREE [None]
  - SCAR [None]
  - WHEELCHAIR USER [None]
